FAERS Safety Report 7992880-8 (Version None)
Quarter: 2011Q4

REPORT INFORMATION
  Report Type: 
  Country: None (occurrence: None)
  Receive Date: 20111219
  Receipt Date: 20110707
  Transmission Date: 20120403
  Serious: No
  Sender: FDA-Public Use
  Company Number: US-ASTRAZENECA-2011SE40762

PATIENT
  Age: 67 Year
  Sex: Female
  Weight: 131.5 kg

DRUGS (7)
  1. CRESTOR [Suspect]
     Indication: HYPERCHOLESTEROLAEMIA
     Route: 048
     Dates: start: 20090101
  2. VYCODIN [Concomitant]
  3. LEVOTHYROXINE SODIUM [Concomitant]
  4. DESARIL [Concomitant]
  5. HYDROCHLOLTHIAZIDE [Concomitant]
  6. EFFEXOR [Concomitant]
  7. RELAFEN [Concomitant]

REACTIONS (2)
  - URTICARIA PAPULAR [None]
  - ARTHROPATHY [None]
